FAERS Safety Report 18677468 (Version 4)
Quarter: 2021Q3

REPORT INFORMATION
  Report Type: Report from Study
  Country: CA (occurrence: CA)
  Receive Date: 20201229
  Receipt Date: 20210709
  Transmission Date: 20211014
  Serious: Yes (Hospitalization, Other)
  Sender: FDA-Public Use
  Company Number: CA-GLAXOSMITHKLINE-CA2020AMR253511

PATIENT
  Age: 91 Year
  Sex: Female

DRUGS (3)
  1. MEPOLIZUMAB [Suspect]
     Active Substance: MEPOLIZUMAB
     Indication: ASTHMA
     Dosage: 100 MG, Z,  EVERY 4 WEEKS
     Route: 058
     Dates: start: 20200902
  2. ARNUITY ELLIPTA [Suspect]
     Active Substance: FLUTICASONE FUROATE
     Indication: PRODUCT USED FOR UNKNOWN INDICATION
     Dosage: 1 PUFF(S), BID
  3. MEPOLIZUMAB [Suspect]
     Active Substance: MEPOLIZUMAB
     Indication: ASTHMA
     Dosage: 100 MG, Z,MONTHLY
     Route: 042
     Dates: start: 20200902

REACTIONS (8)
  - Dyspnoea [Unknown]
  - Cough [Unknown]
  - Exophthalmos [Unknown]
  - Blindness unilateral [Unknown]
  - SARS-CoV-2 test positive [Unknown]
  - Bell^s palsy [Recovering/Resolving]
  - Cellulitis [Unknown]
  - Eye infection [Unknown]

NARRATIVE: CASE EVENT DATE: 20201220
